FAERS Safety Report 6168663-0 (Version None)
Quarter: 2009Q2

REPORT INFORMATION
  Report Type: 
  Country: None (occurrence: None)
  Receive Date: 20090424
  Receipt Date: 20090424
  Transmission Date: 20091009
  Serious: No
  Sender: FDA-Public Use
  Company Number: None

PATIENT
  Age: 60 Year
  Sex: Male
  Weight: 81.65 kg

DRUGS (2)
  1. TERAZOSIN HCL [Suspect]
     Indication: BENIGN PROSTATIC HYPERPLASIA
     Dosage: 15 MG EVERY DAY PO
     Route: 048
     Dates: start: 20081201, end: 20081216
  2. TERAZOSIN HCL [Suspect]
     Indication: HYPERTENSION
     Dosage: 15 MG EVERY DAY PO
     Route: 048
     Dates: start: 20081201, end: 20081216

REACTIONS (2)
  - DIZZINESS [None]
  - NO REACTION ON PREVIOUS EXPOSURE TO DRUG [None]
